FAERS Safety Report 18263331 (Version 13)
Quarter: 2025Q2

REPORT INFORMATION
  Report Type: Report from Study
  Country: US (occurrence: US)
  Receive Date: 20200914
  Receipt Date: 20250519
  Transmission Date: 20250717
  Serious: Yes (Hospitalization, Other)
  Sender: TAKEDA
  Company Number: US-SHIRE-US202029367

PATIENT
  Sex: Female
  Weight: 63 kg

DRUGS (105)
  1. HUMAN IMMUNOGLOBULIN G [Suspect]
     Active Substance: HUMAN IMMUNOGLOBULIN G
     Indication: Dermatomyositis
     Dosage: 50 GRAM, Q2WEEKS
     Dates: start: 20170316
  2. HUMAN IMMUNOGLOBULIN G [Suspect]
     Active Substance: HUMAN IMMUNOGLOBULIN G
     Dosage: 30 GRAM, 1/WEEK
  3. HUMAN IMMUNOGLOBULIN G [Suspect]
     Active Substance: HUMAN IMMUNOGLOBULIN G
     Dosage: 50 GRAM, Q2WEEKS
  4. HUMAN IMMUNOGLOBULIN G [Suspect]
     Active Substance: HUMAN IMMUNOGLOBULIN G
     Dosage: 30 GRAM, 1/WEEK
  5. BENEFIBER [Concomitant]
     Active Substance: STARCH, WHEAT
     Indication: Product used for unknown indication
  6. LIDOCAINE [Concomitant]
     Active Substance: LIDOCAINE
     Indication: Product used for unknown indication
  7. GABAPENTIN [Concomitant]
     Active Substance: GABAPENTIN
     Indication: Product used for unknown indication
  8. OXYCODONE HYDROCHLORIDE [Concomitant]
     Active Substance: OXYCODONE HYDROCHLORIDE
     Indication: Product used for unknown indication
  9. SOLU-MEDROL [Concomitant]
     Active Substance: METHYLPREDNISOLONE SODIUM SUCCINATE
     Indication: Product used for unknown indication
  10. FAMOTIDINE [Concomitant]
     Active Substance: FAMOTIDINE
     Indication: Product used for unknown indication
  11. BENICAR [Concomitant]
     Active Substance: OLMESARTAN MEDOXOMIL
     Indication: Product used for unknown indication
  12. CEVIMELINE HYDROCHLORIDE [Concomitant]
     Active Substance: CEVIMELINE HYDROCHLORIDE
     Indication: Product used for unknown indication
  13. DIETARY SUPPLEMENT [Concomitant]
     Active Substance: DIETARY SUPPLEMENT
     Indication: Product used for unknown indication
  14. VITAMIN D3 [Concomitant]
     Active Substance: CHOLECALCIFEROL
     Indication: Product used for unknown indication
  15. HYOSCYAMINE SULFATE [Concomitant]
     Active Substance: HYOSCYAMINE SULFATE
     Indication: Product used for unknown indication
  16. NASACORT [Concomitant]
     Active Substance: TRIAMCINOLONE ACETONIDE
     Indication: Product used for unknown indication
  17. QVAR [Concomitant]
     Active Substance: BECLOMETHASONE DIPROPIONATE
     Indication: Product used for unknown indication
  18. ACETAMINOPHEN [Concomitant]
     Active Substance: ACETAMINOPHEN
     Indication: Product used for unknown indication
  19. DIPHENHYDRAMINE [Concomitant]
     Active Substance: DIPHENHYDRAMINE
     Indication: Product used for unknown indication
  20. SODIUM CHLORIDE [Concomitant]
     Active Substance: SODIUM CHLORIDE
     Indication: Product used for unknown indication
  21. EPINEPHRINE [Concomitant]
     Active Substance: EPINEPHRINE
     Indication: Product used for unknown indication
  22. Lmx [Concomitant]
     Indication: Product used for unknown indication
  23. ALIGN [Concomitant]
     Active Substance: BIFIDOBACTERIUM LONGUM SUBSP. INFANTIS
     Indication: Product used for unknown indication
  24. NARCAN [Concomitant]
     Active Substance: NALOXONE HYDROCHLORIDE
     Indication: Product used for unknown indication
  25. PREDNISONE [Concomitant]
     Active Substance: PREDNISONE
     Indication: Product used for unknown indication
  26. CYMBALTA [Concomitant]
     Active Substance: DULOXETINE HYDROCHLORIDE
     Indication: Product used for unknown indication
  27. BETAMETHASONE CLOTRIMAZOLE [Concomitant]
     Active Substance: BETAMETHASONE DIPROPIONATE\CLOTRIMAZOLE
     Indication: Product used for unknown indication
  28. OXYCODONE AND ACETAMINOPHEN [Concomitant]
     Active Substance: ACETAMINOPHEN\OXYCODONE HYDROCHLORIDE
     Indication: Product used for unknown indication
  29. TRAZODONE HCL [Concomitant]
     Active Substance: TRAZODONE HYDROCHLORIDE
     Indication: Product used for unknown indication
  30. LUTEIN [Concomitant]
     Active Substance: LUTEIN
     Indication: Product used for unknown indication
  31. Bilberry extract [Concomitant]
     Indication: Product used for unknown indication
  32. FLAXSEED [Concomitant]
     Active Substance: FLAX SEED
     Indication: Product used for unknown indication
  33. PLAQUENIL [Concomitant]
     Active Substance: HYDROXYCHLOROQUINE SULFATE
     Indication: Product used for unknown indication
  34. FOSAMAX [Concomitant]
     Active Substance: ALENDRONATE SODIUM
     Indication: Product used for unknown indication
  35. AZELASTINE HYDROCHLORIDE [Concomitant]
     Active Substance: AZELASTINE HYDROCHLORIDE
     Indication: Product used for unknown indication
  36. MUCINEX D [Concomitant]
     Active Substance: GUAIFENESIN\PSEUDOEPHEDRINE HYDROCHLORIDE
     Indication: Product used for unknown indication
  37. CLARITIN [Concomitant]
     Active Substance: LORATADINE
     Indication: Product used for unknown indication
  38. VITAMIN B COMPLEX [Concomitant]
     Active Substance: CYANOCOBALAMIN\DEXPANTHENOL\NIACINAMIDE\PYRIDOXINE HYDROCHLORIDE\RIBOFLAVIN 5^-PHOSPHATE SODIUM\THIA
     Indication: Product used for unknown indication
  39. VITAMIN C [Concomitant]
     Active Substance: ASCORBIC ACID
     Indication: Product used for unknown indication
  40. ZINC CITRATE [Concomitant]
     Active Substance: ZINC CITRATE
     Indication: Product used for unknown indication
  41. NEILMED SINUS RINSE [Concomitant]
     Active Substance: SODIUM BICARBONATE\SODIUM CHLORIDE
     Indication: Product used for unknown indication
  42. DESONIDE [Concomitant]
     Active Substance: DESONIDE
  43. VOLTAREN [Concomitant]
     Active Substance: DICLOFENAC SODIUM
  44. AZITHROMYCIN [Concomitant]
     Active Substance: AZITHROMYCIN
  45. DONNATAL [Concomitant]
     Active Substance: ATROPINE SULFATE\HYOSCYAMINE SULFATE\PHENOBARBITAL\SCOPOLAMINE HYDROBROMIDE
  46. TOBRAMYCIN [Concomitant]
     Active Substance: TOBRAMYCIN
  47. KEFLEX [Concomitant]
     Active Substance: CEPHALEXIN
  48. QUINACRINE [Concomitant]
     Active Substance: QUINACRINE
  49. DOXYCYCLINE [Concomitant]
     Active Substance: DOXYCYCLINE
  50. FLUTICASONE [Concomitant]
     Active Substance: FLUTICASONE
  51. AUGMENTIN [Concomitant]
     Active Substance: AMOXICILLIN\CLAVULANATE POTASSIUM
  52. ALEVE [Concomitant]
     Active Substance: NAPROXEN SODIUM
  53. VERAMYST [Concomitant]
     Active Substance: FLUTICASONE FUROATE
  54. CLARITHROMYCIN [Concomitant]
     Active Substance: CLARITHROMYCIN
  55. ENDOCET [Concomitant]
     Active Substance: ACETAMINOPHEN\OXYCODONE HYDROCHLORIDE
  56. HYDROXYCHLOROQUINE [Concomitant]
     Active Substance: HYDROXYCHLOROQUINE
  57. CETIRIZINE [Concomitant]
     Active Substance: CETIRIZINE HYDROCHLORIDE
  58. TYLENOL [Concomitant]
     Active Substance: ACETAMINOPHEN
  59. VITAMIN K [Concomitant]
     Active Substance: PHYTONADIONE
  60. VIVELLE-DOT [Concomitant]
     Active Substance: ESTRADIOL
  61. FISH OIL [Concomitant]
     Active Substance: FISH OIL
  62. OMEGA 3 [Concomitant]
     Active Substance: CAPSAICIN
  63. Calcium plus d3 [Concomitant]
  64. VITAMIN B12 [Concomitant]
     Active Substance: CYANOCOBALAMIN
  65. PROGESTERONE [Concomitant]
     Active Substance: PROGESTERONE
  66. ACIDOPHILUS [Concomitant]
     Active Substance: LACTOBACILLUS ACIDOPHILUS
  67. ROXICET [Concomitant]
     Active Substance: ACETAMINOPHEN\OXYCODONE HYDROCHLORIDE
  68. HERBALS\HOMEOPATHICS\GOLDENSEAL [Concomitant]
     Active Substance: HERBALS\HOMEOPATHICS\GOLDENSEAL
  69. RANITIDINE [Concomitant]
     Active Substance: RANITIDINE
  70. FLAXSEED [Concomitant]
     Active Substance: FLAX SEED
  71. BILBERRY [Concomitant]
     Active Substance: BILBERRY
  72. ERYTHROMYCIN [Concomitant]
     Active Substance: ERYTHROMYCIN
  73. PANTOPRAZOLE [Concomitant]
     Active Substance: PANTOPRAZOLE
  74. Genteal Lubricant [Concomitant]
  75. ZINC [Concomitant]
     Active Substance: ZINC
  76. MAGNESIUM [Concomitant]
     Active Substance: MAGNESIUM
  77. PERCOCET [Concomitant]
     Active Substance: ACETAMINOPHEN\OXYCODONE HYDROCHLORIDE
  78. RELPAX [Concomitant]
     Active Substance: ELETRIPTAN HYDROBROMIDE
  79. CANNABIS SATIVA SUBSP. INDICA TOP [Concomitant]
     Active Substance: CANNABIS SATIVA SUBSP. INDICA TOP
  80. FORTEO [Concomitant]
     Active Substance: TERIPARATIDE
  81. HYDROCORTISONE ACETATE [Concomitant]
     Active Substance: HYDROCORTISONE ACETATE
  82. ELETRIPTAN HYDROBROMIDE [Concomitant]
     Active Substance: ELETRIPTAN HYDROBROMIDE
  83. METHYLPREDNISOLONE [Concomitant]
     Active Substance: METHYLPREDNISOLONE
  84. PREMARIN [Concomitant]
     Active Substance: ESTROGENS, CONJUGATED
  85. XOPENEX [Concomitant]
     Active Substance: LEVALBUTEROL HYDROCHLORIDE
  86. MIRALAX [Concomitant]
     Active Substance: POLYETHYLENE GLYCOL 3350
  87. PSYLLIUM [Concomitant]
     Active Substance: PLANTAGO SEED
  88. BETAMETHASONE [Concomitant]
     Active Substance: BETAMETHASONE
  89. Coq [Concomitant]
  90. FLONASE ALLERGY RELIEF [Concomitant]
     Active Substance: FLUTICASONE PROPIONATE
  91. Delsym cough plus chest congestion [Concomitant]
  92. VITAMIN B [Concomitant]
     Active Substance: VITAMIN B
  93. DIPHENHYDRAMINE HYDROCHLORIDE [Concomitant]
     Active Substance: DIPHENHYDRAMINE HYDROCHLORIDE
  94. CALCIUM\VITAMIN D [Concomitant]
     Active Substance: CALCIUM\VITAMIN D
  95. NYSTATIN [Concomitant]
     Active Substance: NYSTATIN
  96. TOBRADEX [Concomitant]
     Active Substance: DEXAMETHASONE\TOBRAMYCIN
  97. PAXLOVID [Concomitant]
     Active Substance: NIRMATRELVIR\RITONAVIR
  98. ARNICA MONTANA FLOWER [Concomitant]
     Active Substance: ARNICA MONTANA FLOWER
  99. ENEMA (SODIUM PHOSPHATE, DIBASIC\SODIUM PHOSPHATE, MONOBASIC) [Concomitant]
     Active Substance: SODIUM PHOSPHATE, DIBASIC\SODIUM PHOSPHATE, MONOBASIC
  100. VITAMIN E [Concomitant]
     Active Substance: .ALPHA.-TOCOPHEROL
  101. RECLAST [Concomitant]
     Active Substance: ZOLEDRONIC ACID
  102. ENBREL [Concomitant]
     Active Substance: ETANERCEPT
  103. Ben [Concomitant]
  104. BENZONATATE [Concomitant]
     Active Substance: BENZONATATE
  105. IPRATROPIUM [Concomitant]
     Active Substance: IPRATROPIUM

REACTIONS (19)
  - Multiple fractures [Unknown]
  - Fall [Unknown]
  - Basal cell carcinoma [Unknown]
  - Nasopharyngitis [Unknown]
  - Peripheral swelling [Unknown]
  - Fibromyalgia [Unknown]
  - Post procedural swelling [Unknown]
  - COVID-19 [Unknown]
  - Product preparation issue [Unknown]
  - Product use in unapproved indication [Unknown]
  - Inappropriate schedule of product administration [Unknown]
  - Infusion site extravasation [Unknown]
  - Pain in extremity [Unknown]
  - Infusion site swelling [Unknown]
  - Erythema [Unknown]
  - Infusion site pain [Unknown]
  - Back pain [Unknown]
  - Arthralgia [Unknown]
  - Headache [Unknown]
